FAERS Safety Report 25796028 (Version 2)
Quarter: 2025Q3

REPORT INFORMATION
  Report Type: Report from Study
  Country: US (occurrence: US)
  Receive Date: 20250912
  Receipt Date: 20250926
  Transmission Date: 20251021
  Serious: Yes (Hospitalization, Other)
  Sender: BAYER HEALTHCARE PHARMACEUTICALS INC.
  Company Number: US-BAYER-2025A117117

PATIENT
  Age: 68 Year
  Sex: Male

DRUGS (4)
  1. STIVARGA [Suspect]
     Active Substance: REGORAFENIB MONOHYDRATE
     Indication: Colon cancer
     Dosage: 120 MG, QD FOR 21 DAYS ON, 7 DAYS OFF.
     Dates: start: 20250825, end: 2025
  2. OXYCODONE [Suspect]
     Active Substance: OXYCODONE
     Indication: Abdominal pain upper
  3. MORPHINE [Suspect]
     Active Substance: MORPHINE
     Indication: Abdominal pain upper
  4. CIPRO [Concomitant]
     Active Substance: CIPROFLOXACIN HYDROCHLORIDE

REACTIONS (19)
  - Illness [Not Recovered/Not Resolved]
  - Drainage [Not Recovered/Not Resolved]
  - Abdominal pain upper [Recovered/Resolved]
  - Pyrexia [Not Recovered/Not Resolved]
  - Hallucination, visual [Not Recovered/Not Resolved]
  - Disorientation [Not Recovered/Not Resolved]
  - Constipation [Not Recovered/Not Resolved]
  - Hiccups [Not Recovered/Not Resolved]
  - Dyspnoea [Unknown]
  - Productive cough [Unknown]
  - Dehydration [Unknown]
  - Platelet count abnormal [Unknown]
  - Blood bilirubin abnormal [Unknown]
  - Vomiting [Not Recovered/Not Resolved]
  - Dry mouth [Not Recovered/Not Resolved]
  - Nausea [Not Recovered/Not Resolved]
  - Fatigue [Unknown]
  - Pain [Unknown]
  - Product use issue [Not Recovered/Not Resolved]

NARRATIVE: CASE EVENT DATE: 20250101
